FAERS Safety Report 5609289-4 (Version None)
Quarter: 2008Q1

REPORT INFORMATION
  Report Type: 
  Country: None (occurrence: None)
  Receive Date: 20080131
  Receipt Date: 20080130
  Transmission Date: 20080703
  Serious: Yes (Hospitalization)
  Sender: FDA-Public Use
  Company Number: US-BRISTOL-MYERS SQUIBB COMPANY-14037972

PATIENT
  Age: 53 Year
  Sex: Female

DRUGS (9)
  1. PACLITAXEL [Suspect]
     Indication: BREAST CANCER METASTATIC
     Route: 042
     Dates: start: 20070808
  2. LAPATINIB [Suspect]
     Indication: BREAST CANCER METASTATIC
     Route: 048
     Dates: start: 20070808
  3. TRASTUZUMAB [Suspect]
     Indication: BREAST CANCER METASTATIC
     Route: 042
     Dates: start: 20070808
  4. ZOLEDRONIC ACID [Concomitant]
     Dates: start: 20070806
  5. HYDROCHLOROTHIAZIDE [Concomitant]
  6. LOPERAMIDE HCL [Concomitant]
     Dates: start: 20070808
  7. TELMISARTAN [Concomitant]
  8. PERCOCET [Concomitant]
     Dates: start: 20070905
  9. TEMAZEPAM [Concomitant]
     Dates: start: 20071025

REACTIONS (8)
  - BONE PAIN [None]
  - DECREASED APPETITE [None]
  - DEHYDRATION [None]
  - FATIGUE [None]
  - GUILLAIN-BARRE SYNDROME [None]
  - HYPOTENSION [None]
  - LETHARGY [None]
  - NEUROPATHY PERIPHERAL [None]
